FAERS Safety Report 8716063 (Version 2)
Quarter: 2013Q1

REPORT INFORMATION
  Report Type: Spontaneous
  Country: US (occurrence: US)
  Receive Date: 20120809
  Receipt Date: 20130215
  Transmission Date: 20140127
  Serious: Yes (Hospitalization, Other)
  Sender: FDA-Public Use
  Company Number: CHPA2012US016959

PATIENT
  Age: 58 Year
  Sex: Female

DRUGS (12)
  1. CONTROL PLP [Suspect]
     Indication: SMOKING CESSATION THERAPY
     Dosage: 21 MG, QD
     Route: 062
     Dates: start: 2007, end: 2007
  2. CONTROL PLP [Suspect]
     Dosage: 21 MG, QD
     Route: 062
     Dates: start: 20120602, end: 20120610
  3. CONTROL PLP [Suspect]
     Dosage: 21 MG, QD
     Route: 062
     Dates: start: 20120719
  4. CHANTIX [Concomitant]
     Indication: SMOKING CESSATION THERAPY
     Dosage: UNK, UNK
  5. LYRICA [Concomitant]
     Indication: SPINAL COLUMN STENOSIS
     Dosage: UNK, UNK
  6. FLOVENT [Concomitant]
     Dosage: 2 DF, QD
  7. DYAZIDE [Concomitant]
     Indication: FLUID RETENTION
     Dosage: UNK, UNK
     Dates: start: 2005
  8. NEURONTIN [Concomitant]
     Indication: SPINAL COLUMN STENOSIS
     Dosage: 600 MG, TID
  9. SPIRIVA ^BOEHRINGER INGELHEIM^ [Concomitant]
     Dosage: 1 DF, QD
  10. NORCO [Concomitant]
     Indication: BACK PAIN
     Dosage: 1 DF, BID
  11. FAMOTIDINE [Concomitant]
     Indication: GASTROOESOPHAGEAL REFLUX DISEASE
     Dosage: UNK, UNK
  12. NICOTINELL TTS [Concomitant]
     Indication: SMOKING CESSATION THERAPY
     Dosage: UNK, UNK
     Dates: start: 201207, end: 201207

REACTIONS (20)
  - Chronic obstructive pulmonary disease [Recovered/Resolved]
  - Pneumonia [Recovered/Resolved]
  - Dyspnoea [Recovered/Resolved]
  - Respiratory tract infection [Unknown]
  - Bronchitis [Unknown]
  - Hypoxia [Recovered/Resolved]
  - Renal cancer [Recovered/Resolved]
  - Bladder cancer [Recovered/Resolved]
  - Large intestine perforation [Recovered/Resolved]
  - Abscess intestinal [Recovered/Resolved]
  - Diverticulitis [Unknown]
  - Blood glucose increased [Recovered/Resolved]
  - Platelet count decreased [Unknown]
  - Herpes zoster [Recovered/Resolved]
  - Oral candidiasis [Unknown]
  - Application site discomfort [Not Recovered/Not Resolved]
  - Application site pruritus [Not Recovered/Not Resolved]
  - Application site erythema [Not Recovered/Not Resolved]
  - Inappropriate schedule of drug administration [Unknown]
  - Expired drug administered [Unknown]
